FAERS Safety Report 25844520 (Version 2)
Quarter: 2025Q3

REPORT INFORMATION
  Report Type: Spontaneous
  Country: US (occurrence: US)
  Receive Date: 20250925
  Receipt Date: 20250930
  Transmission Date: 20251021
  Serious: Yes (Hospitalization, Disabling, Other)
  Sender: DERMARITE INDUSTRIES
  Company Number: US-DERMARITE INDUSTRIES, LLC.-2025-DER-US000032

PATIENT

DRUGS (3)
  1. PERIGUARD [Suspect]
     Active Substance: PETROLATUM
     Indication: Decubitus ulcer
     Route: 061
     Dates: end: 202509
  2. PERIGUARD [Suspect]
     Active Substance: PETROLATUM
     Indication: Urinary tract infection
  3. PERIGUARD [Suspect]
     Active Substance: PETROLATUM
     Indication: Wound

REACTIONS (4)
  - Sepsis [Not Recovered/Not Resolved]
  - Condition aggravated [Not Recovered/Not Resolved]
  - Pneumonia aspiration [Not Recovered/Not Resolved]
  - Pathogen resistance [Not Recovered/Not Resolved]

NARRATIVE: CASE EVENT DATE: 20250101
